FAERS Safety Report 10064313 (Version 2)
Quarter: 2014Q2

REPORT INFORMATION
  Report Type: Spontaneous
  Country: ES (occurrence: None)
  Receive Date: 20140404
  Receipt Date: 20140610
  Transmission Date: 20141212
  Serious: Yes (Other)
  Sender: FDA-Public Use
  Company Number: 2014ES00318

PATIENT
  Age: 44 Year
  Sex: Female

DRUGS (3)
  1. TOPIRAMATE [Suspect]
     Indication: IMPULSE-CONTROL DISORDER
  2. METFORMIN (METFORMIN) [Concomitant]
  3. ENALAPRIL (ENALAPRIL) [Concomitant]

REACTIONS (3)
  - Dexamethasone suppression test positive [None]
  - Drug ineffective [None]
  - False positive investigation result [None]
